FAERS Safety Report 12703505 (Version 1)
Quarter: 2016Q3

REPORT INFORMATION
  Report Type: Report from Study
  Country: US (occurrence: US)
  Receive Date: 20160831
  Receipt Date: 20160831
  Transmission Date: 20161109
  Serious: Yes (Hospitalization, Other)
  Sender: FDA-Public Use
  Company Number: US-JNJFOC-20160221271

PATIENT
  Age: 76 Year
  Sex: Male

DRUGS (12)
  1. HYDROCODONE [Concomitant]
     Active Substance: HYDROCODONE
  2. IMBRUVICA [Suspect]
     Active Substance: IBRUTINIB
     Indication: CHRONIC LYMPHOCYTIC LEUKAEMIA
     Route: 048
     Dates: start: 201601
  3. PRAVASTATIN. [Concomitant]
     Active Substance: PRAVASTATIN
  4. VITAMIN D3 [Concomitant]
     Active Substance: CHOLECALCIFEROL
  5. MOXIFLOXACIN. [Concomitant]
     Active Substance: MOXIFLOXACIN
  6. ACETAMINOPHEN. [Concomitant]
     Active Substance: ACETAMINOPHEN
  7. LYRICA [Concomitant]
     Active Substance: PREGABALIN
  8. MINOCYCLINE [Concomitant]
     Active Substance: MINOCYCLINE\MINOCYCLINE HYDROCHLORIDE
  9. ATENOLOL. [Concomitant]
     Active Substance: ATENOLOL
  10. TRAZODONE [Concomitant]
     Active Substance: TRAZODONE HYDROCHLORIDE
  11. LEVOTHYROXINE. [Concomitant]
     Active Substance: LEVOTHYROXINE
  12. MELATONIN [Concomitant]
     Active Substance: MELATONIN

REACTIONS (19)
  - Metastases to lung [Unknown]
  - Pyrexia [Unknown]
  - Urinary tract infection [Unknown]
  - Herpes zoster [Unknown]
  - Decreased appetite [Unknown]
  - Asthenia [Unknown]
  - Arthralgia [Recovering/Resolving]
  - Myalgia [Recovering/Resolving]
  - Post herpetic neuralgia [Unknown]
  - Hypoaesthesia [Unknown]
  - Joint swelling [Unknown]
  - Fatigue [Unknown]
  - Rash erythematous [Unknown]
  - Back pain [Recovering/Resolving]
  - Ankle fracture [Unknown]
  - Bladder cancer [Unknown]
  - Incoherent [Unknown]
  - White blood cell count increased [Unknown]
  - Fall [Unknown]

NARRATIVE: CASE EVENT DATE: 2016
